FAERS Safety Report 7180463-1 (Version None)
Quarter: 2010Q4

REPORT INFORMATION
  Report Type: 
  Country: None (occurrence: None)
  Receive Date: 20101221
  Receipt Date: 20101215
  Transmission Date: 20110411
  Serious: Yes (Hospitalization, Other)
  Sender: FDA-Public Use
  Company Number: AU-ABBOTT-10P-008-0668552-00

PATIENT
  Sex: Female
  Weight: 50 kg

DRUGS (10)
  1. HUMIRA [Suspect]
     Indication: ANORECTAL DISORDER
  2. HUMIRA [Suspect]
     Dates: start: 20100330, end: 20100330
  3. HUMIRA [Suspect]
     Dates: end: 20100608
  4. HUMIRA [Suspect]
     Dates: start: 20100713
  5. HUMIRA [Suspect]
     Dosage: RELOAD
     Dates: start: 20100816
  6. HUMIRA [Suspect]
  7. HUMIRA [Suspect]
  8. THIOPURINE [Concomitant]
     Indication: PRODUCT USED FOR UNKNOWN INDICATION
  9. AZATHIOPRINE [Concomitant]
     Indication: PRODUCT USED FOR UNKNOWN INDICATION
  10. ALLOPURINOL [Concomitant]
     Indication: PRODUCT USED FOR UNKNOWN INDICATION

REACTIONS (5)
  - ANORECTAL DISORDER [None]
  - C-REACTIVE PROTEIN INCREASED [None]
  - CANDIDIASIS [None]
  - RECTAL ABSCESS [None]
  - VIRAL INFECTION [None]
